FAERS Safety Report 9255024 (Version 1)
Quarter: 2013Q2

REPORT INFORMATION
  Report Type: Spontaneous
  Country: US (occurrence: None)
  Receive Date: 20130418
  Receipt Date: 20130418
  Transmission Date: 20140414
  Serious: No
  Sender: FDA-Public Use
  Company Number: 2013P1004625

PATIENT
  Age: 48 Year
  Sex: Male

DRUGS (2)
  1. INFUMORPH [Suspect]
     Indication: PAIN
  2. INFUMORPH [Suspect]
     Indication: POST LAMINECTOMY SYNDROME

REACTIONS (7)
  - Device malfunction [None]
  - Drug withdrawal syndrome [None]
  - Pain [None]
  - Hyperhidrosis [None]
  - Influenza like illness [None]
  - Underdose [None]
  - Malaise [None]
